FAERS Safety Report 18320667 (Version 17)
Quarter: 2024Q1

REPORT INFORMATION
  Report Type: Spontaneous
  Country: US (occurrence: US)
  Receive Date: 20200928
  Receipt Date: 20240223
  Transmission Date: 20240410
  Serious: Yes (Hospitalization, Disabling, Other)
  Sender: FDA-Public Use
  Company Number: US-PFIZER INC-2020372619

PATIENT
  Age: 74 Year
  Sex: Female
  Weight: 100.68 kg

DRUGS (16)
  1. IBRANCE [Suspect]
     Active Substance: PALBOCICLIB
     Indication: Breast cancer metastatic
     Dosage: 125 MG
  2. IBRANCE [Suspect]
     Active Substance: PALBOCICLIB
     Dosage: 125 MG
     Dates: start: 20200828
  3. IBRANCE [Suspect]
     Active Substance: PALBOCICLIB
     Dosage: 125 MG
     Dates: start: 20210315
  4. IBRANCE [Suspect]
     Active Substance: PALBOCICLIB
     Dosage: 100 MG, CYCLIC: DAILY 21 CONSECUTIVE DAYS AND START BACK TAKING ON 28TH DAY
     Dates: start: 202106, end: 202312
  5. LEVOTHYROXINE [Concomitant]
     Active Substance: LEVOTHYROXINE\LEVOTHYROXINE SODIUM
     Indication: Thyroid disorder
     Dosage: 125 MG, TAKEN AN HOUR BEFORE EATING
     Dates: start: 2009
  6. LEVOTHYROXINE [Concomitant]
     Active Substance: LEVOTHYROXINE\LEVOTHYROXINE SODIUM
     Dosage: 100 MG
  7. LEVOTHYROXINE [Concomitant]
     Active Substance: LEVOTHYROXINE\LEVOTHYROXINE SODIUM
     Dosage: 112 MG
  8. CHOLECALCIFEROL [Concomitant]
     Active Substance: CHOLECALCIFEROL
     Dosage: 1000 MG, DAILY
  9. ALEVE [Concomitant]
     Active Substance: NAPROXEN SODIUM
     Dosage: TAKE ONE TABLET BY ORAL ROUTE EVERY TWELVE HOURS AS NEEDED
     Route: 048
  10. AMLODIPINE [Concomitant]
     Active Substance: AMLODIPINE BESYLATE
     Dosage: TAKE ONE TABLET BY ORAL ROUTE EVERY DAY
     Route: 048
  11. OXAYDO [Concomitant]
     Active Substance: OXYCODONE HYDROCHLORIDE
     Dosage: TAKE ONE TABLET EVERY MORNING
     Route: 048
  12. TIROSINT [Concomitant]
     Active Substance: LEVOTHYROXINE SODIUM
     Dosage: TAKE ONE CAPSULE BY ORAL ROUTE EVERY DAY
     Route: 048
  13. VITAMIN D2 [Concomitant]
     Active Substance: ERGOCALCIFEROL
     Dosage: TAKE 1 CAPSULE BY ORAL ROUTE EVERY WEEK
     Route: 048
  14. FASLODEX [Concomitant]
     Active Substance: FULVESTRANT
     Indication: Breast cancer metastatic
     Dosage: 500 MG
     Dates: start: 20191220, end: 20231027
  15. XELODA [Concomitant]
     Active Substance: CAPECITABINE
     Dosage: 1500MG BID (TWICE A DAY) (FLAT DOSAGE) D1-7 9 14
  16. XELODA [Concomitant]
     Active Substance: CAPECITABINE
     Dosage: XELODA (CAPECITABINE) 1500 MG-2000MG BY MOUTH TWICE DAILY (FLAT DOSING) ON DAYS 1-7 EVERY 14 DAYS

REACTIONS (21)
  - Immobile [Not Recovered/Not Resolved]
  - Ankle fracture [Unknown]
  - Blood pressure increased [Unknown]
  - Tension [Recovering/Resolving]
  - Platelet count decreased [Unknown]
  - Illness [Unknown]
  - Anxiety [Unknown]
  - Insomnia [Unknown]
  - Distractibility [Unknown]
  - Pruritus [Unknown]
  - Arthralgia [Unknown]
  - Full blood count decreased [Unknown]
  - Knee arthroplasty [Unknown]
  - Hyperventilation [Unknown]
  - Stress [Unknown]
  - Diverticulitis [Unknown]
  - Musculoskeletal stiffness [Unknown]
  - Neoplasm progression [Unknown]
  - Pain in extremity [Unknown]
  - Lymphoedema [Unknown]
  - Anxiety [Unknown]

NARRATIVE: CASE EVENT DATE: 20150331
